FAERS Safety Report 6741643-X (Version None)
Quarter: 2010Q2

REPORT INFORMATION
  Report Type: 
  Country: None (occurrence: None)
  Receive Date: 20100524
  Receipt Date: 20100511
  Transmission Date: 20101027
  Serious: Yes (Hospitalization)
  Sender: FDA-Public Use
  Company Number: 2010AL002877

PATIENT
  Age: 42 Year
  Sex: Female

DRUGS (3)
  1. DIAZEPAM TAB [Suspect]
     Dosage: PO
     Route: 048
  2. TRAMADOL HYDROCHLORIDE [Suspect]
     Dosage: ; PO
     Route: 048
  3. COPAXONE [Concomitant]

REACTIONS (6)
  - FAMILY STRESS [None]
  - INTENTIONAL OVERDOSE [None]
  - PLATELET COUNT INCREASED [None]
  - PROGRESSIVE MULTIPLE SCLEROSIS [None]
  - WHITE BLOOD CELL COUNT INCREASED [None]
  - WRONG TECHNIQUE IN DRUG USAGE PROCESS [None]
